FAERS Safety Report 5982570-5 (Version None)
Quarter: 2008Q4

REPORT INFORMATION
  Report Type: 
  Country: None (occurrence: None)
  Receive Date: 20081208
  Receipt Date: 20081127
  Transmission Date: 20090506
  Serious: Yes (Hospitalization)
  Sender: FDA-Public Use
  Company Number: PHHY2008AR29783

PATIENT
  Sex: Female

DRUGS (2)
  1. DIOVAN [Suspect]
     Indication: HYPERTENSION
     Dosage: 80 MG, QD
  2. DIOXAFLEX B12 [Concomitant]
     Indication: ANTIINFLAMMATORY THERAPY

REACTIONS (2)
  - BLOOD PRESSURE INCREASED [None]
  - SPINAL OPERATION [None]
